FAERS Safety Report 10581108 (Version 2)
Quarter: 2014Q4

REPORT INFORMATION
  Report Type: Spontaneous
  Country: DK (occurrence: DK)
  Receive Date: 20141113
  Receipt Date: 20141113
  Transmission Date: 20150529
  Serious: Yes (Death)
  Sender: FDA-Public Use
  Company Number: DK-CIPLA LTD.-2013DK00891

PATIENT

DRUGS (3)
  1. ZOPICLONE [Suspect]
     Active Substance: ZOPICLONE
  2. RISPERIDONE. [Suspect]
     Active Substance: RISPERIDONE
     Indication: SCHIZOPHRENIA
  3. ETHANOL [Suspect]
     Active Substance: ALCOHOL

REACTIONS (2)
  - Toxicity to various agents [Fatal]
  - Drug level [Fatal]
